FAERS Safety Report 24142137 (Version 1)
Quarter: 2024Q3

REPORT INFORMATION
  Report Type: Spontaneous
  Country: IL (occurrence: IL)
  Receive Date: 20240726
  Receipt Date: 20240726
  Transmission Date: 20241016
  Serious: Yes (Other)
  Sender: ALEXION PHARMACEUTICALS
  Company Number: IL-ALXN-202406EEA001022IL

PATIENT
  Age: 23 Year
  Sex: Male
  Weight: 72 kg

DRUGS (6)
  1. ULTOMIRIS [Suspect]
     Active Substance: RAVULIZUMAB-CWVZ
     Indication: Glomerulonephritis membranoproliferative
     Dosage: 3300 MILLIGRAM, Q2W
     Route: 065
     Dates: start: 20211116, end: 20240609
  2. TACROLIMUS [Concomitant]
     Active Substance: TACROLIMUS
     Indication: Renal transplant
     Dosage: 17 MILLIGRAM, QD
     Route: 065
     Dates: start: 201909
  3. MYCOPHENOLIC ACID [Concomitant]
     Active Substance: MYCOPHENOLIC ACID
     Indication: Renal transplant
     Dosage: 720 MILLIGRAM, BID
     Route: 065
     Dates: start: 201909
  4. PREDNISOLONE [Concomitant]
     Active Substance: PREDNISOLONE
     Indication: Renal transplant
     Dosage: 10 MILLIGRAM, QOD
     Route: 065
     Dates: start: 201909
  5. Enalpril [Concomitant]
     Indication: Proteinuria
     Dosage: 30 MILLIGRAM, QD
     Route: 065
     Dates: start: 2022
  6. Enalpril [Concomitant]
     Indication: Hypertension

REACTIONS (5)
  - Nephrotic syndrome [Not Recovered/Not Resolved]
  - Glomerulonephritis membranoproliferative [Not Recovered/Not Resolved]
  - Transplant rejection [Not Recovered/Not Resolved]
  - Drug ineffective [Unknown]
  - Off label use [Unknown]

NARRATIVE: CASE EVENT DATE: 20230701
